FAERS Safety Report 10190834 (Version 1)
Quarter: 2014Q2

REPORT INFORMATION
  Report Type: Spontaneous
  Country: US (occurrence: US)
  Receive Date: 20140523
  Receipt Date: 20140523
  Transmission Date: 20141212
  Serious: Yes (Hospitalization)
  Sender: FDA-Public Use
  Company Number: US-BRISTOL-MYERS SQUIBB COMPANY-20734885

PATIENT
  Age: 86 Year
  Sex: Female

DRUGS (4)
  1. ELIQUIS [Suspect]
     Indication: CEREBROVASCULAR ACCIDENT PROPHYLAXIS
  2. TOPROL [Concomitant]
  3. ASPIRIN [Concomitant]
  4. CLOPIDOGREL BISULFATE [Concomitant]

REACTIONS (2)
  - Cardiac failure congestive [Unknown]
  - Intracardiac thrombus [Unknown]
